FAERS Safety Report 8784252 (Version 2)
Quarter: 2012Q4

REPORT INFORMATION
  Report Type: Spontaneous
  Country: PE (occurrence: None)
  Receive Date: 20120830
  Receipt Date: 20120913
  Transmission Date: 20130627
  Serious: Yes (Death, Hospitalization, Other)
  Sender: FDA-Public Use
  Company Number: 2012P1053971

PATIENT
  Age: 48 Year
  Sex: Female

DRUGS (3)
  1. METHIMAZOLE [Suspect]
     Indication: GRAVES^ DISEASE
  2. FUROSEMIDE [Concomitant]
  3. PROPRANOLOL [Concomitant]

REACTIONS (10)
  - Pyrexia [None]
  - Palpitations [None]
  - Oropharyngeal pain [None]
  - Blood thyroid stimulating hormone decreased [None]
  - Thyroxine free increased [None]
  - Neutropenia [None]
  - Haemoptysis [None]
  - Bronchopulmonary aspergillosis [None]
  - Treatment failure [None]
  - Multi-organ failure [None]
